FAERS Safety Report 18837770 (Version 3)
Quarter: 2021Q1

REPORT INFORMATION
  Report Type: Report from Study
  Country: US (occurrence: US)
  Receive Date: 20210203
  Receipt Date: 20210316
  Transmission Date: 20210419
  Serious: No
  Sender: FDA-Public Use
  Company Number: NVSC2021US016745

PATIENT
  Sex: Male

DRUGS (2)
  1. COSENTYX [Suspect]
     Active Substance: SECUKINUMAB
     Indication: PSORIATIC ARTHROPATHY
     Dosage: 150 MG, QMO, BENEATH THE SKIN, USUALLY VIA INJECTRION
     Route: 058
  2. COSENTYX [Suspect]
     Active Substance: SECUKINUMAB
     Dosage: 150 MG, QMO
     Route: 058

REACTIONS (6)
  - Asthenia [Unknown]
  - Carpal tunnel syndrome [Unknown]
  - Injection site haemorrhage [Unknown]
  - Inflammation [Unknown]
  - Grip strength decreased [Unknown]
  - Injection site bruising [Unknown]
